FAERS Safety Report 9405268 (Version 1)
Quarter: 2013Q3

REPORT INFORMATION
  Report Type: Spontaneous
  Country: FR (occurrence: FR)
  Receive Date: 20130717
  Receipt Date: 20130717
  Transmission Date: 20140515
  Serious: Yes (Hospitalization)
  Sender: FDA-Public Use
  Company Number: FR-TEVA-419181ISR

PATIENT
  Age: 65 Year
  Sex: Female

DRUGS (6)
  1. FUROSEMIDE TEVA 40 MG SCORED TABLET [Suspect]
     Indication: PULMONARY ARTERIAL HYPERTENSION
     Dosage: 40 MILLIGRAM DAILY;
     Route: 048
     Dates: start: 20130501, end: 20130609
  2. TRACLEER [Concomitant]
  3. LEXOMIL [Concomitant]
  4. ATARAX [Concomitant]
  5. EFFEXOR [Concomitant]
     Dosage: 1 DOSAGE FORMS DAILY;
  6. LASILIX [Concomitant]

REACTIONS (3)
  - Sudden onset of sleep [Recovered/Resolved]
  - Sleep disorder [Recovered/Resolved]
  - Somnolence [Unknown]
